FAERS Safety Report 4696651-X (Version None)
Quarter: 2005Q2

REPORT INFORMATION
  Report Type: 
  Country: None (occurrence: None)
  Receive Date: 20050616
  Receipt Date: 20050513
  Transmission Date: 20051028
  Serious: No
  Sender: FDA-Public Use
  Company Number: BDI-007184

PATIENT
  Age: 29 Year
  Sex: Female
  Weight: 64 kg

DRUGS (3)
  1. MULTIHANCE [Suspect]
     Indication: HYPERTENSION
     Dosage: 20 ML ONCE IV
     Route: 042
     Dates: start: 20050512, end: 20050512
  2. MULTIHANCE [Suspect]
     Indication: NUCLEAR MAGNETIC RESONANCE IMAGING
     Dosage: 20 ML ONCE IV
     Route: 042
     Dates: start: 20050512, end: 20050512
  3. ALLEGRA [Concomitant]

REACTIONS (8)
  - DISCOMFORT [None]
  - DYSPHONIA [None]
  - FLUSHING [None]
  - LACRIMATION INCREASED [None]
  - NASAL CONGESTION [None]
  - PRURITUS [None]
  - TACHYCARDIA [None]
  - URTICARIA [None]
